FAERS Safety Report 24409719 (Version 1)
Quarter: 2024Q4

REPORT INFORMATION
  Report Type: Spontaneous
  Country: GR (occurrence: GR)
  Receive Date: 20241008
  Receipt Date: 20241008
  Transmission Date: 20250115
  Serious: Yes (Other)
  Sender: LEADING PHARMA
  Company Number: GR-LEADINGPHARMA-GR-2024LEALIT00446

PATIENT
  Age: 70 Year
  Sex: Male

DRUGS (1)
  1. HYDROXYUREA [Suspect]
     Active Substance: HYDROXYUREA
     Indication: Polycythaemia vera
     Route: 065

REACTIONS (3)
  - Squamous cell carcinoma [Not Recovered/Not Resolved]
  - Drug intolerance [Unknown]
  - Product use in unapproved indication [Unknown]
